FAERS Safety Report 9262238 (Version 2)
Quarter: 2013Q2

REPORT INFORMATION
  Report Type: Report from Study
  Country: PL (occurrence: PL)
  Receive Date: 20130430
  Receipt Date: 20130528
  Transmission Date: 20140414
  Serious: Yes (Hospitalization)
  Sender: FDA-Public Use
  Company Number: PL-009507513-1304POL016625

PATIENT
  Age: 78 Year
  Sex: Female
  Weight: 39 kg

DRUGS (6)
  1. DEXAMETHASONE [Suspect]
     Indication: PLASMA CELL MYELOMA
     Dosage: 20 MG, ON DAY 1, 2,4, 5,8,9,11 AND 12 EVERY 21 DAYS
     Route: 048
     Dates: start: 20130222, end: 20130409
  2. BORTEZOMIB [Suspect]
     Indication: PLASMA CELL MYELOMA
     Dosage: 1.3 MG/M2 ON DAY 1,4,8,11; EVERY 21 DAYS
     Route: 058
     Dates: start: 20130222, end: 20130412
  3. METOPROLOL SUCCINATE [Concomitant]
     Indication: CARDIAC FAILURE
     Dosage: UNK
     Dates: start: 2005
  4. TRIMETAZIDINE [Concomitant]
     Indication: CARDIAC FAILURE
     Dosage: UNK
     Dates: start: 2005
  5. CLODRONATE DISODIUM [Concomitant]
     Indication: OSTEOPOROSIS
     Dosage: UNK
     Dates: start: 2010
  6. CALCIUM CARBONATE [Concomitant]
     Indication: OSTEOPOROSIS
     Dosage: UNK
     Dates: start: 2010

REACTIONS (1)
  - Pneumonitis [Recovered/Resolved]
